FAERS Safety Report 26151128 (Version 1)
Quarter: 2025Q4

REPORT INFORMATION
  Report Type: Spontaneous
  Country: EU (occurrence: EU)
  Receive Date: 20251212
  Receipt Date: 20251212
  Transmission Date: 20260118
  Serious: Yes (Life-Threatening, Hospitalization)
  Sender: MERCK SHARP & DOHME LLC
  Company Number: None

PATIENT
  Age: 81 Year
  Sex: Male
  Weight: 62 kg

DRUGS (1)
  1. KEYTRUDA [Suspect]
     Active Substance: PEMBROLIZUMAB
     Indication: Metastatic malignant melanoma
     Dosage: 125 MG C/21
     Route: 042
     Dates: start: 20250929, end: 20251020

REACTIONS (1)
  - Myocarditis-myositis-myasthenia gravis overlap syndrome [Unknown]

NARRATIVE: CASE EVENT DATE: 20251025
